FAERS Safety Report 25284534 (Version 1)
Quarter: 2025Q2

REPORT INFORMATION
  Report Type: Spontaneous
  Country: US (occurrence: US)
  Receive Date: 20250508
  Receipt Date: 20250508
  Transmission Date: 20250717
  Serious: No
  Sender: BridgeBio Pharma
  Company Number: US-BRIDGEBIO-25US000433

PATIENT

DRUGS (1)
  1. ATTRUBY [Suspect]
     Active Substance: ACORAMIDIS HYDROCHLORIDE
     Route: 065

REACTIONS (2)
  - Muscular weakness [Unknown]
  - Product packaging difficult to open [Unknown]
